FAERS Safety Report 4695650-1 (Version None)
Quarter: 2005Q2

REPORT INFORMATION
  Report Type: 
  Country: None (occurrence: None)
  Receive Date: 20050617
  Receipt Date: 20050617
  Transmission Date: 20051028
  Serious: Yes (Other)
  Sender: FDA-Public Use
  Company Number: None

PATIENT
  Age: 71 Year
  Sex: Male
  Weight: 87.5 kg

DRUGS (5)
  1. OXYBUTYNIN CHLORIDE [Suspect]
  2. CODEINE 30/ACETAMINOPHEN [Concomitant]
  3. SILDENAFIL CITRATE [Concomitant]
  4. IXTBUTYMIN CHLORIDE [Concomitant]
  5. FLUNISOLINE [Concomitant]

REACTIONS (2)
  - CONSTIPATION [None]
  - DRY MOUTH [None]
